FAERS Safety Report 6967584-0 (Version None)
Quarter: 2010Q3

REPORT INFORMATION
  Report Type: 
  Country: None (occurrence: None)
  Receive Date: 20100907
  Receipt Date: 20100825
  Transmission Date: 20110219
  Serious: Yes (Other)
  Sender: FDA-Public Use
  Company Number: CN-PFIZER INC-2010106864

PATIENT
  Age: 77 Year
  Sex: Female

DRUGS (2)
  1. VFEND [Suspect]
     Indication: ASPERGILLOSIS
     Dosage: 6 MG/KG, 2X/DAY
     Route: 041
     Dates: start: 20100812, end: 20100818
  2. VFEND [Suspect]
     Dosage: 4 MG/KG, 2X/DAY
     Route: 048
     Dates: start: 20100819

REACTIONS (2)
  - ANGINA PECTORIS [None]
  - UNRESPONSIVE TO STIMULI [None]
